FAERS Safety Report 4512963-4 (Version None)
Quarter: 2004Q4

REPORT INFORMATION
  Report Type: 
  Country: None (occurrence: None)
  Receive Date: 20041124
  Receipt Date: 20041124
  Transmission Date: 20050328
  Serious: Yes (Other)
  Sender: FDA-Public Use
  Company Number: None

PATIENT
  Age: 63 Year
  Sex: Female
  Weight: 79.3795 kg

DRUGS (1)
  1. BUSPIRONE (GENERIC) [Suspect]
     Indication: ANXIETY
     Dosage: 10 MG, DAILY, ORAL
     Route: 048
     Dates: start: 20040201

REACTIONS (4)
  - CRYING [None]
  - FEELING JITTERY [None]
  - HEART RATE INCREASED [None]
  - INSOMNIA [None]
